FAERS Safety Report 4921113-1 (Version None)
Quarter: 2006Q1

REPORT INFORMATION
  Report Type: 
  Country: None (occurrence: None)
  Receive Date: 20060217
  Receipt Date: 20060208
  Transmission Date: 20060701
  Serious: Yes (Hospitalization)
  Sender: FDA-Public Use
  Company Number: 2006-02-0402

PATIENT
  Age: 49 Year
  Sex: Male

DRUGS (1)
  1. INTRON A [Suspect]
     Indication: HEPATITIS C
     Dosage: 6 MIU INTRAMUSCULAR
     Route: 030
     Dates: start: 20050808, end: 20051010

REACTIONS (3)
  - HYPOAESTHESIA [None]
  - HYPOCALCAEMIA [None]
  - TETANY [None]
